FAERS Safety Report 19989917 (Version 3)
Quarter: 2022Q3

REPORT INFORMATION
  Report Type: Report from Study
  Country: BR (occurrence: BR)
  Receive Date: 20211025
  Receipt Date: 20220831
  Transmission Date: 20221026
  Serious: Yes (Hospitalization)
  Sender: FDA-Public Use
  Company Number: BR-ABBVIE-21K-020-4130905-00

PATIENT
  Sex: Female
  Weight: 59 kg

DRUGS (3)
  1. RINVOQ [Suspect]
     Active Substance: UPADACITINIB
     Indication: Rheumatoid arthritis
     Route: 048
     Dates: start: 20210921
  2. ATENOLOL [Concomitant]
     Active Substance: ATENOLOL
     Indication: Hypertension
  3. HYDRALAZINE HYDROCHLORIDE [Concomitant]
     Active Substance: HYDRALAZINE HYDROCHLORIDE
     Indication: Hypertension

REACTIONS (9)
  - Urinary tract infection [Recovered/Resolved]
  - Blood sodium decreased [Recovered/Resolved]
  - Pain [Unknown]
  - Dizziness [Not Recovered/Not Resolved]
  - Malaise [Not Recovered/Not Resolved]
  - Visual impairment [Not Recovered/Not Resolved]
  - Joint swelling [Recovering/Resolving]
  - Pain [Unknown]
  - Joint swelling [Unknown]

NARRATIVE: CASE EVENT DATE: 20210101
